FAERS Safety Report 20720800 (Version 1)
Quarter: 2022Q2

REPORT INFORMATION
  Report Type: Spontaneous
  Country: LB (occurrence: None)
  Receive Date: 20220418
  Receipt Date: 20220418
  Transmission Date: 20220721
  Serious: Yes (Other)
  Sender: FDA-Public Use
  Company Number: LB-ROCHE-3076475

PATIENT
  Sex: Male
  Weight: 70 kg

DRUGS (13)
  1. MABTHERA [Suspect]
     Active Substance: RITUXIMAB
     Indication: Diffuse large B-cell lymphoma
     Dosage: MABTHERA 750 FROM JAN/2022 TO 11/MAR/2022 FOR 3 CYCLES.
     Route: 065
     Dates: start: 202201, end: 20220311
  2. RITUXIMAB [Suspect]
     Active Substance: RITUXIMAB
     Indication: Diffuse large B-cell lymphoma
     Dosage: FOR 8 CYCLES FROM FROM 21/NOV/2020 TILL 07/APR/2021
     Route: 065
     Dates: start: 20201121, end: 20210407
  3. RITUXIMAB [Suspect]
     Active Substance: RITUXIMAB
     Dosage: /JUL/2021 TILL /OCT/2021 FOR 4 CYCLES
     Route: 065
     Dates: start: 202107, end: 202110
  4. CYCLOPHOSPHAMIDE [Suspect]
     Active Substance: CYCLOPHOSPHAMIDE
     Indication: Diffuse large B-cell lymphoma
     Dosage: FOR 8 CYCLES FROM FROM 21/NOV/2020 TILL 07/APR/2021
     Route: 065
     Dates: start: 20201121, end: 20210407
  5. ADRIAMYCIN [Suspect]
     Active Substance: DOXORUBICIN HYDROCHLORIDE
     Indication: Diffuse large B-cell lymphoma
     Dosage: FOR 8 CYCLES FROM FROM 21/NOV/2020 TILL 07/APR/2021
     Route: 065
     Dates: start: 20201121, end: 20210407
  6. VINCRISTINE [Suspect]
     Active Substance: VINCRISTINE
     Indication: Diffuse large B-cell lymphoma
     Dosage: FOR 8 CYCLES FROM FROM 21/NOV/2020 TILL 07/APR/2021
     Route: 065
     Dates: start: 20201121, end: 20210407
  7. PREDNISONE [Suspect]
     Active Substance: PREDNISONE
     Indication: Diffuse large B-cell lymphoma
     Dosage: FOR 8 CYCLES FROM FROM 21/NOV/2020 TILL 07/APR/2021
     Route: 065
     Dates: start: 20201121, end: 20210407
  8. IFOSFAMIDE\MESNA [Suspect]
     Active Substance: IFOSFAMIDE\MESNA
     Indication: Diffuse large B-cell lymphoma
     Dosage: /JUL/2021 TILL /OCT/2021 FOR 4 CYCLES
     Route: 065
     Dates: start: 202107, end: 202110
  9. CISPLATIN [Suspect]
     Active Substance: CISPLATIN
     Indication: Diffuse large B-cell lymphoma
     Dosage: /JUL/2021 TILL /OCT/2021 FOR 4 CYCLES
     Route: 065
     Dates: start: 202107, end: 202110
  10. CISPLATIN [Suspect]
     Active Substance: CISPLATIN
     Dosage: JAN/2022 TO 11/MAR/2022 FOR 3 CYCLE
     Route: 065
     Dates: start: 202201, end: 20220311
  11. ETOPOSIDE [Suspect]
     Active Substance: ETOPOSIDE
     Indication: Diffuse large B-cell lymphoma
     Dosage: /JUL/2021 TILL /OCT/2021 FOR 4 CYCLES
     Route: 065
     Dates: start: 202107, end: 202110
  12. DEXAMETHASONE [Suspect]
     Active Substance: DEXAMETHASONE
     Indication: Diffuse large B-cell lymphoma
     Dosage: JAN/2022 TO 11/MAR/2022 FOR 3 CYCLE
     Route: 065
     Dates: start: 202201, end: 20220311
  13. CYTARABINE [Suspect]
     Active Substance: CYTARABINE
     Indication: Diffuse large B-cell lymphoma
     Dosage: 3G FOR 2 DAYS, JAN/2022 TO 11/MAR/2022 FOR 3 CYCLE
     Route: 065
     Dates: start: 202201, end: 20220311

REACTIONS (1)
  - Disease progression [Unknown]
